FAERS Safety Report 9212383 (Version 1)
Quarter: 2013Q2

REPORT INFORMATION
  Report Type: Spontaneous
  Country: US (occurrence: US)
  Receive Date: 20130404
  Receipt Date: 20130404
  Transmission Date: 20140414
  Serious: No
  Sender: FDA-Public Use
  Company Number: US-009507513-1303USA013224

PATIENT
  Age: 65 Year
  Sex: Male

DRUGS (2)
  1. MIRALAX [Suspect]
     Indication: CONSTIPATION
     Dosage: UNK, ONCE
     Route: 048
  2. LORTAB [Concomitant]
     Indication: PAIN
     Dosage: 1 DF, ONCE
     Dates: start: 20130226

REACTIONS (2)
  - Groin pain [Not Recovered/Not Resolved]
  - Expired drug administered [Unknown]
